FAERS Safety Report 8951234 (Version 1)
Quarter: 2012Q4

REPORT INFORMATION
  Report Type: Spontaneous
  Country: US (occurrence: None)
  Receive Date: 20121129
  Receipt Date: 20121129
  Transmission Date: 20130627
  Serious: Yes (Hospitalization, Other)
  Sender: FDA-Public Use
  Company Number: 12003116

PATIENT
  Age: 49 Year
  Sex: Female

DRUGS (1)
  1. DIVIGEL [Suspect]
     Route: 061
     Dates: start: 201203, end: 20121112

REACTIONS (12)
  - Pituitary tumour benign [None]
  - Electrolyte imbalance [None]
  - Convulsion [None]
  - Syncope [None]
  - Dizziness [None]
  - Headache [None]
  - Neck pain [None]
  - Chest pain [None]
  - Vision blurred [None]
  - Asthenia [None]
  - Balance disorder [None]
  - Heart rate decreased [None]
